FAERS Safety Report 24666458 (Version 3)
Quarter: 2025Q1

REPORT INFORMATION
  Report Type: Spontaneous
  Country: US (occurrence: US)
  Receive Date: 20241126
  Receipt Date: 20250123
  Transmission Date: 20250409
  Serious: No
  Sender: SANOFI AVENTIS
  Company Number: US-SA-2024SA336553

PATIENT
  Age: 61 Year
  Sex: Female

DRUGS (2)
  1. DUPIXENT [Suspect]
     Active Substance: DUPILUMAB
     Indication: Dermatitis atopic
     Dosage: 300 MG, QOW
     Route: 058
  2. DUPIXENT [Suspect]
     Active Substance: DUPILUMAB
     Dosage: 300 MG, QW
     Route: 058

REACTIONS (8)
  - Memory impairment [Unknown]
  - Inappropriate schedule of product administration [Unknown]
  - Dermatitis atopic [Unknown]
  - Dermatitis [Not Recovered/Not Resolved]
  - Skin atrophy [Not Recovered/Not Resolved]
  - Therapeutic response decreased [Unknown]
  - Eczema [Unknown]
  - Off label use [Unknown]

NARRATIVE: CASE EVENT DATE: 20240101
